FAERS Safety Report 5316887-4 (Version None)
Quarter: 2007Q2

REPORT INFORMATION
  Report Type: 
  Country: None (occurrence: None)
  Receive Date: 20070504
  Receipt Date: 20070427
  Transmission Date: 20071010
  Serious: Yes (Other)
  Sender: FDA-Public Use
  Company Number: GB-GLAXOSMITHKLINE-B0434555A

PATIENT
  Age: 33 Year

DRUGS (1)
  1. ZANTAC [Suspect]
     Indication: DRUG USE FOR UNKNOWN INDICATION
     Dosage: 50MG UNKNOWN
     Route: 030
     Dates: start: 20060301, end: 20060302

REACTIONS (4)
  - FACE OEDEMA [None]
  - FLUSHING [None]
  - HYPOTENSION [None]
  - PERIORBITAL OEDEMA [None]
